FAERS Safety Report 11815088 (Version 2)
Quarter: 2016Q4

REPORT INFORMATION
  Report Type: Spontaneous
  Country: US (occurrence: US)
  Receive Date: 20151209
  Receipt Date: 20161117
  Transmission Date: 20170206
  Serious: No
  Sender: FDA-Public Use
  Company Number: US-SA-2015SA165524

PATIENT
  Age: 67 Year
  Sex: Male
  Weight: 136.07 kg

DRUGS (8)
  1. TOUJEO [Suspect]
     Active Substance: INSULIN GLARGINE
     Indication: TYPE 2 DIABETES MELLITUS
     Dosage: DOSE:462 UNIT(S)
     Route: 065
     Dates: start: 2015
  2. TOUJEO [Suspect]
     Active Substance: INSULIN GLARGINE
     Indication: TYPE 2 DIABETES MELLITUS
     Dosage: DOSE AND FREQUENCY: FOUR INJECTIONS OF 75 UNITS EACH: 2 INJECTIONS IN THE AM AND 2 IN THE PM
     Route: 065
     Dates: start: 2015
  3. TOUJEO [Suspect]
     Active Substance: INSULIN GLARGINE
     Indication: TYPE 2 DIABETES MELLITUS
     Dosage: DOSE AND FREQUENCY: FOUR INJECTIONS OF 75 UNITS EACH: 2 INJECTIONS IN THE AM AND 2 IN THE PM
     Route: 065
     Dates: start: 2015
  4. TOUJEO [Suspect]
     Active Substance: INSULIN GLARGINE
     Indication: TYPE 2 DIABETES MELLITUS
     Dosage: DOSE:462 UNIT(S)
     Route: 065
     Dates: start: 2015
  5. SOLOSTAR [Suspect]
     Active Substance: DEVICE
     Indication: TYPE 2 DIABETES MELLITUS
     Dosage: FREQUENCY: 2 INJECTIONS IN THE AM AND 2 IN THE PM
     Dates: start: 2015
  6. TOUJEO [Suspect]
     Active Substance: INSULIN GLARGINE
     Indication: TYPE 2 DIABETES MELLITUS
     Dosage: DOSE:400 UNIT(S)
     Route: 065
     Dates: start: 2015
  7. SOLOSTAR [Suspect]
     Active Substance: DEVICE
     Indication: TYPE 2 DIABETES MELLITUS
     Dosage: FREQUENCY: 2 INJECTIONS IN THE AM AND 2 IN THE PM
     Dates: start: 2015
  8. TOUJEO [Suspect]
     Active Substance: INSULIN GLARGINE
     Indication: TYPE 2 DIABETES MELLITUS
     Dosage: DOSE:400 UNIT(S)
     Route: 065
     Dates: start: 2015

REACTIONS (5)
  - Product use issue [Unknown]
  - Blood glucose increased [Unknown]
  - Hyperhidrosis [Unknown]
  - Blood glucose fluctuation [Unknown]
  - Wrong technique in product usage process [Unknown]
